FAERS Safety Report 4601351-8 (Version None)
Quarter: 2005Q1

REPORT INFORMATION
  Report Type: 
  Country: None (occurrence: None)
  Receive Date: 20050308
  Receipt Date: 20050218
  Transmission Date: 20050727
  Serious: Yes (Hospitalization)
  Sender: FDA-Public Use
  Company Number: US-AMGEN-US115216

PATIENT
  Sex: Female
  Weight: 100.3 kg

DRUGS (6)
  1. NEUPOGEN [Suspect]
     Indication: MYELODYSPLASTIC SYNDROME
     Route: 058
     Dates: start: 20050215, end: 20050215
  2. PLATELETS [Concomitant]
     Dates: start: 20050215
  3. PROCRIT [Concomitant]
     Dates: start: 20021212, end: 20050215
  4. TAMBOCOR [Concomitant]
     Route: 048
  5. AMARYL [Concomitant]
     Route: 048
  6. TAMBOCOR [Concomitant]
     Route: 048

REACTIONS (14)
  - BACK PAIN [None]
  - BRADYCARDIA [None]
  - CARDIAC MURMUR [None]
  - CHILLS [None]
  - ELECTROLYTE IMBALANCE [None]
  - HYPERGLYCAEMIA [None]
  - NAUSEA [None]
  - PYREXIA [None]
  - RALES [None]
  - RASH [None]
  - SEPSIS [None]
  - SUPRAVENTRICULAR TACHYCARDIA [None]
  - TRANSFUSION REACTION [None]
  - VOMITING [None]
